FAERS Safety Report 7938972-0 (Version None)
Quarter: 2011Q4

REPORT INFORMATION
  Report Type: 
  Country: None (occurrence: None)
  Receive Date: 20111124
  Receipt Date: 20111118
  Transmission Date: 20120403
  Serious: No
  Sender: FDA-Public Use
  Company Number: US-PFIZER INC-2011285220

PATIENT
  Sex: Male

DRUGS (3)
  1. OXYCODONE [Concomitant]
     Dosage: 15 MG, UNK
     Route: 048
  2. METFORMIN [Concomitant]
     Dosage: 500 MG, UNK
     Route: 048
  3. SUTENT [Suspect]
     Dosage: 50 MG, 1X/DAY FOR 4 WEEKS ON, 2 WEEKS OFF
     Route: 048

REACTIONS (1)
  - BLOOD PRESSURE INCREASED [None]
